FAERS Safety Report 4378662-7 (Version None)
Quarter: 2004Q2

REPORT INFORMATION
  Report Type: 
  Country: None (occurrence: None)
  Receive Date: 20040616
  Receipt Date: 20040604
  Transmission Date: 20050107
  Serious: Yes (Hospitalization, Other)
  Sender: FDA-Public Use
  Company Number: US-BRISTOL-MYERS SQUIBB COMPANY-12606596

PATIENT
  Age: 71 Year
  Sex: Male
  Weight: 113 kg

DRUGS (4)
  1. ERBITUX [Suspect]
     Indication: COLON CANCER METASTATIC
     Dosage: 1ST 25-MAR-04(900MG),2ND 31-MAR-04(600MG),3RD 07-APR-04(600MG),4TH 19-APR-04,600MG
     Route: 042
     Dates: start: 20040401, end: 20040401
  2. IRINOTECAN [Concomitant]
     Dosage: GIVEN ON 07-APR-04 AND 19-APR-04
     Dates: start: 20040401, end: 20040401
  3. FLUOROURACIL [Concomitant]
     Dosage: GIVEN ON 25-MAR-04, 07-APR-04 AND 19-APR-04
     Dates: start: 20040401, end: 20040401
  4. WARFARIN SODIUM [Concomitant]

REACTIONS (6)
  - ASTHENIA [None]
  - DERMATITIS ACNEIFORM [None]
  - DIARRHOEA [None]
  - GASTROENTERITIS [None]
  - GASTROINTESTINAL TOXICITY [None]
  - INTERSTITIAL LUNG DISEASE [None]
